FAERS Safety Report 19272369 (Version 3)
Quarter: 2023Q1

REPORT INFORMATION
  Report Type: Spontaneous
  Country: JP (occurrence: JP)
  Receive Date: 20210519
  Receipt Date: 20230209
  Transmission Date: 20230418
  Serious: Yes (Death, Other)
  Sender: FDA-Public Use
  Company Number: JP-BRISTOL-MYERS SQUIBB COMPANY-BMS-2021-043224

PATIENT
  Age: 73 Year
  Sex: Male

DRUGS (4)
  1. YERVOY [Suspect]
     Active Substance: IPILIMUMAB
     Indication: Non-small cell lung cancer recurrent
     Dosage: 120 MILLIGRAM, ONE TIME DOSE
     Route: 041
     Dates: start: 20210319
  2. OPDIVO [Suspect]
     Active Substance: NIVOLUMAB
     Indication: Non-small cell lung cancer recurrent
     Dosage: 120 MILLIGRAM, ONE TIME DOSE
     Route: 041
     Dates: start: 20210319
  3. OPDIVO [Suspect]
     Active Substance: NIVOLUMAB
     Dosage: 480 MILLIGRAM, Q4WK
     Route: 041
  4. MAXIPIME [Suspect]
     Active Substance: CEFEPIME HYDROCHLORIDE
     Indication: Febrile neutropenia
     Dosage: UNK

REACTIONS (3)
  - Febrile neutropenia [Unknown]
  - Immune-mediated dermatitis [Recovered/Resolved]
  - Non-small cell lung cancer [Fatal]

NARRATIVE: CASE EVENT DATE: 20210810
